FAERS Safety Report 12442587 (Version 5)
Quarter: 2016Q4

REPORT INFORMATION
  Report Type: Report from Study
  Country: BR (occurrence: BR)
  Receive Date: 20160607
  Receipt Date: 20161103
  Transmission Date: 20170207
  Serious: Yes (Hospitalization, Other)
  Sender: FDA-Public Use
  Company Number: PHHY2016BR062803

PATIENT
  Age: 64 Year
  Sex: Female
  Weight: 54.5 kg

DRUGS (5)
  1. EXEMESTANE. [Concomitant]
     Active Substance: EXEMESTANE
     Indication: PRODUCT USED FOR UNKNOWN INDICATION
     Dosage: 1 DF, QD
     Route: 065
     Dates: start: 201510
  2. EXEMESTANE. [Concomitant]
     Active Substance: EXEMESTANE
     Indication: BREAST CANCER METASTATIC
  3. ERIBULIN [Concomitant]
     Active Substance: ERIBULIN
     Indication: PRODUCT USED FOR UNKNOWN INDICATION
     Route: 065
  4. AFINITOR [Suspect]
     Active Substance: EVEROLIMUS
     Indication: BREAST CANCER METASTATIC
     Dosage: 10 MG, QD
     Route: 048
     Dates: start: 201510
  5. AFINITOR [Suspect]
     Active Substance: EVEROLIMUS
     Dosage: 5 MG, QD
     Route: 048
     Dates: start: 201510

REACTIONS (34)
  - Metastases to neck [Unknown]
  - Feeding disorder [Recovering/Resolving]
  - Dyspnoea [Recovered/Resolved]
  - Decreased appetite [Unknown]
  - Pneumonitis [Unknown]
  - Pulmonary oedema [Recovered/Resolved]
  - Joint swelling [Recovered/Resolved]
  - Hyperglycaemia [Unknown]
  - Diarrhoea [Recovered/Resolved]
  - Anaemia [Unknown]
  - Malaise [Unknown]
  - Insomnia [Unknown]
  - Weight decreased [Not Recovered/Not Resolved]
  - Rash [Unknown]
  - Cough [Recovering/Resolving]
  - Malignant neoplasm progression [Unknown]
  - Blood cholesterol increased [Unknown]
  - Nausea [Unknown]
  - Drug ineffective [Unknown]
  - Eye swelling [Recovered/Resolved]
  - Diabetes mellitus [Unknown]
  - Swelling face [Recovered/Resolved]
  - Swollen tongue [Recovered/Resolved]
  - Head injury [Recovering/Resolving]
  - Swelling [Recovering/Resolving]
  - Pneumonitis [Recovered/Resolved]
  - Metastases to spine [Unknown]
  - Pruritus generalised [Recovering/Resolving]
  - Rhinitis [Unknown]
  - Fatigue [Unknown]
  - Erysipelas [Unknown]
  - Vomiting [Unknown]
  - Pain in extremity [Unknown]
  - Movement disorder [Unknown]

NARRATIVE: CASE EVENT DATE: 201512
